FAERS Safety Report 23004198 (Version 3)
Quarter: 2024Q1

REPORT INFORMATION
  Report Type: Spontaneous
  Country: US (occurrence: US)
  Receive Date: 20230928
  Receipt Date: 20240109
  Transmission Date: 20240410
  Serious: Yes (Other)
  Sender: FDA-Public Use
  Company Number: US-PFIZER INC-PV202300160184

PATIENT
  Age: 56 Year
  Sex: Male

DRUGS (3)
  1. XELJANZ XR [Suspect]
     Active Substance: TOFACITINIB CITRATE
     Indication: Rheumatoid arthritis
     Dosage: 11 MG, DAILY
     Route: 048
     Dates: start: 2021
  2. XELJANZ XR [Suspect]
     Active Substance: TOFACITINIB CITRATE
     Dosage: 11 MG, 1X/DAY
  3. RASUVO [Concomitant]
     Active Substance: METHOTREXATE SODIUM
     Dosage: AUTO INJ (0.5ML)

REACTIONS (7)
  - Arthralgia [Not Recovered/Not Resolved]
  - Burning sensation [Not Recovered/Not Resolved]
  - Joint swelling [Not Recovered/Not Resolved]
  - Meniscus injury [Not Recovered/Not Resolved]
  - Osteoarthritis [Not Recovered/Not Resolved]
  - Depression [Not Recovered/Not Resolved]
  - Disease recurrence [Not Recovered/Not Resolved]

NARRATIVE: CASE EVENT DATE: 20230101
